FAERS Safety Report 8790451 (Version 1)
Quarter: 2012Q4

REPORT INFORMATION
  Report Type: Spontaneous
  Country: US (occurrence: None)
  Receive Date: 20120911
  Receipt Date: 20120911
  Transmission Date: 20130627
  Serious: Yes (Hospitalization)
  Sender: FDA-Public Use
  Company Number: None

PATIENT
  Age: 42 Year
  Sex: Female
  Weight: 65.32 kg

DRUGS (1)
  1. EPIPEN [Suspect]
     Dosage: Expiration Date 10/31/2010

REACTIONS (3)
  - Injury associated with device [None]
  - Product label issue [None]
  - Wrong technique in drug usage process [None]
